FAERS Safety Report 11316671 (Version 2)
Quarter: 2015Q3

REPORT INFORMATION
  Report Type: Spontaneous
  Country: US (occurrence: US)
  Receive Date: 20150728
  Receipt Date: 20150827
  Transmission Date: 20151125
  Serious: Yes (Other)
  Sender: FDA-Public Use
  Company Number: US-BEH-2015052725

PATIENT
  Age: 16 Year
  Sex: Female

DRUGS (1)
  1. IVIG [Suspect]
     Active Substance: HUMAN IMMUNOGLOBULIN G
     Indication: KAWASAKI^S DISEASE
     Dosage: THREE DOSES OVER 8 DAYS, WITH A CUMULATIVE DOSE OF 3 G/KG
     Route: 042

REACTIONS (7)
  - Reticulocytosis [Recovered/Resolved]
  - Haemoglobin decreased [Recovered/Resolved]
  - Extravascular haemolysis [Recovered/Resolved]
  - Haemolysis [Recovered/Resolved]
  - Red blood cell spherocytes present [Recovered/Resolved]
  - Haemolytic anaemia [Recovered/Resolved]
  - Blood lactate dehydrogenase increased [Recovered/Resolved]
